FAERS Safety Report 14386241 (Version 1)
Quarter: 2018Q1

REPORT INFORMATION
  Report Type: Spontaneous
  Country: US (occurrence: US)
  Receive Date: 20180115
  Receipt Date: 20180115
  Transmission Date: 20180509
  Serious: Yes (Other)
  Sender: FDA-Public Use
  Company Number: US-SA-2017SA085264

PATIENT
  Age: 59 Year
  Sex: Female
  Weight: 56.69 kg

DRUGS (6)
  1. PARAPLATIN [Concomitant]
     Active Substance: CARBOPLATIN
     Indication: BREAST CANCER
     Route: 042
  2. HERCEPTIN [Concomitant]
     Active Substance: TRASTUZUMAB
     Route: 042
  3. TAXOTERE [Suspect]
     Active Substance: DOCETAXEL
     Indication: INVASIVE DUCTAL BREAST CARCINOMA
     Dosage: FREQUENCY: EVERY 3 WEEKS
     Route: 042
     Dates: start: 20100526, end: 20100526
  4. TAXOTERE [Suspect]
     Active Substance: DOCETAXEL
     Indication: INVASIVE DUCTAL BREAST CARCINOMA
     Route: 042
     Dates: start: 20100908, end: 20100908
  5. HERCEPTIN [Concomitant]
     Active Substance: TRASTUZUMAB
     Route: 042
  6. DEXAMETHASONE. [Concomitant]
     Active Substance: DEXAMETHASONE
     Dosage: 2 TABLET EVERY 12 HOURLY THE DAY BEFORE, ON THE DAY AND DAY AFTER CHEMO
     Route: 048
     Dates: start: 20100518, end: 20100917

REACTIONS (11)
  - Dehydration [Unknown]
  - Lacrimation increased [Recovered/Resolved]
  - Anaemia [Recovered/Resolved]
  - Alopecia [Not Recovered/Not Resolved]
  - Dizziness [Recovered/Resolved]
  - Hypophagia [Unknown]
  - Palpitations [Unknown]
  - Fatigue [Unknown]
  - Dizziness [Unknown]
  - Psychological trauma [Unknown]
  - Nausea [Unknown]

NARRATIVE: CASE EVENT DATE: 20110308
